FAERS Safety Report 6806931-7 (Version None)
Quarter: 2010Q2

REPORT INFORMATION
  Report Type: 
  Country: None (occurrence: None)
  Receive Date: 20100629
  Receipt Date: 20080603
  Transmission Date: 20101027
  Serious: No
  Sender: FDA-Public Use
  Company Number: US-PFIZER INC-2008047879

PATIENT
  Sex: Female

DRUGS (2)
  1. ZYVOX [Suspect]
     Indication: STAPHYLOCOCCAL INFECTION
     Route: 048
     Dates: start: 20071001
  2. ADALIMUMAB [Suspect]
     Indication: CROHN'S DISEASE
     Route: 058
     Dates: start: 20070901

REACTIONS (1)
  - ORAL CANDIDIASIS [None]
